FAERS Safety Report 18039461 (Version 1)
Quarter: 2020Q3

REPORT INFORMATION
  Report Type: Report from Study
  Country: US (occurrence: US)
  Receive Date: 20200717
  Receipt Date: 20200717
  Transmission Date: 20201103
  Serious: Yes (Hospitalization)
  Sender: FDA-Public Use
  Company Number: US-BAYER-2020-139240

PATIENT
  Age: 68 Year
  Sex: Female

DRUGS (1)
  1. STIVARGA [Suspect]
     Active Substance: REGORAFENIB
     Indication: COLON CANCER
     Dosage: DAILY DOSE 120 MG FOR 21 DAYS
     Dates: start: 20200620, end: 2020

REACTIONS (6)
  - Off label use [None]
  - Anal incontinence [Unknown]
  - Drug intolerance [Unknown]
  - Decreased appetite [Unknown]
  - Diarrhoea [Unknown]
  - Dehydration [None]

NARRATIVE: CASE EVENT DATE: 202006
